FAERS Safety Report 5727288-9 (Version None)
Quarter: 2008Q2

REPORT INFORMATION
  Report Type: 
  Country: None (occurrence: None)
  Receive Date: 20080430
  Receipt Date: 20080421
  Transmission Date: 20081010
  Serious: No
  Sender: FDA-Public Use
  Company Number: 2008-170914-NL

PATIENT
  Age: 38 Year
  Sex: Female

DRUGS (5)
  1. ETONOGESTREL [Suspect]
     Indication: CONTRACEPTION
     Dosage: DF SUBCUTANEOUS
     Route: 058
     Dates: start: 20050601, end: 20080122
  2. PROCHLORPERAZINE [Concomitant]
  3. ACETAMINOPHEN W/ CODEINE [Concomitant]
  4. LEVOTHYROXINE SODIUM [Concomitant]
  5. RADIOTHERAPY [Concomitant]

REACTIONS (4)
  - AMENORRHOEA [None]
  - CONTRACEPTIVE DEVICE COMPLICATION [None]
  - METRORRHAGIA [None]
  - PAPILLARY THYROID CANCER [None]
